FAERS Safety Report 8134771-8 (Version None)
Quarter: 2012Q1

REPORT INFORMATION
  Report Type: 
  Country: None (occurrence: None)
  Receive Date: 20120214
  Receipt Date: 20120206
  Transmission Date: 20120608
  Serious: Yes (Hospitalization)
  Sender: FDA-Public Use
  Company Number: US-US-EMD SERONO, INC.-7017228

PATIENT
  Sex: Female
  Weight: 86 kg

DRUGS (13)
  1. LISINOPRIL [Concomitant]
     Indication: HYPERTENSION
  2. FLU SHOT [Concomitant]
     Dates: start: 20100913, end: 20100913
  3. REBIF [Suspect]
     Indication: MULTIPLE SCLEROSIS
     Route: 058
     Dates: start: 20100701
  4. ZOCOR [Concomitant]
     Indication: BLOOD CHOLESTEROL INCREASED
  5. FISH OIL [Concomitant]
  6. REBIF [Suspect]
     Route: 058
     Dates: end: 20110901
  7. GLUCOPHAGE [Concomitant]
     Indication: DIABETES MELLITUS
  8. ZOCOR [Concomitant]
     Indication: DYSLIPIDAEMIA
  9. CELEXA [Concomitant]
     Dates: start: 20100701
  10. REBIF [Suspect]
     Route: 058
     Dates: start: 20100908, end: 20110801
  11. SYNTHROID [Suspect]
     Indication: HYPOTHYROIDISM
     Route: 048
     Dates: start: 20020101, end: 20100901
  12. AMARYL [Concomitant]
     Indication: DIABETES MELLITUS
  13. NIACIN [Concomitant]

REACTIONS (4)
  - DEPRESSED MOOD [None]
  - VENTRICULAR EXTRASYSTOLES [None]
  - THYROID FUNCTION TEST ABNORMAL [None]
  - HEPATIC ENZYME INCREASED [None]
